FAERS Safety Report 7381082-4 (Version None)
Quarter: 2011Q1

REPORT INFORMATION
  Report Type: 
  Country: None (occurrence: None)
  Receive Date: 20110329
  Receipt Date: 20100524
  Transmission Date: 20110831
  Serious: No
  Sender: FDA-Public Use
  Company Number: US-AMGEN-KDL415050

PATIENT
  Sex: Female

DRUGS (1)
  1. SENSIPAR [Suspect]
     Indication: PARATHYROID TUMOUR MALIGNANT
     Dosage: 60 MG, TID
     Route: 048

REACTIONS (4)
  - GASTROSTOMY TUBE INSERTION [None]
  - VOMITING [None]
  - BLOOD CALCIUM INCREASED [None]
  - WEIGHT DECREASED [None]
